FAERS Safety Report 7683118-X (Version None)
Quarter: 2011Q3

REPORT INFORMATION
  Report Type: 
  Country: None (occurrence: None)
  Receive Date: 20110815
  Receipt Date: 20110810
  Transmission Date: 20111222
  Serious: Yes (Other)
  Sender: FDA-Public Use
  Company Number: BR-PFIZER INC-2011183688

PATIENT
  Age: 55 Year
  Sex: Female

DRUGS (3)
  1. GEODON [Suspect]
     Dosage: ONE TABLET OF 40MG IN THE MORNING AND ONE TABLET OF 20 MG AT NIGHT
     Route: 048
  2. ALPRAZOLAM [Concomitant]
     Dosage: UNK
     Dates: start: 20080101
  3. GEODON [Suspect]
     Indication: PSYCHOTHERAPY
     Dosage: 80 MG, UNK
     Route: 048
     Dates: start: 20080810

REACTIONS (1)
  - ABNORMAL BEHAVIOUR [None]
